FAERS Safety Report 7562322-5 (Version None)
Quarter: 2011Q2

REPORT INFORMATION
  Report Type: 
  Country: None (occurrence: None)
  Receive Date: 20110622
  Receipt Date: 20110613
  Transmission Date: 20111010
  Serious: Yes (Other)
  Sender: FDA-Public Use
  Company Number: US-JNJFOC-20110607490

PATIENT
  Sex: Female
  Weight: 52.16 kg

DRUGS (9)
  1. LEVAQUIN [Suspect]
     Dosage: FOR SEVEN DAYS
     Route: 048
     Dates: start: 20101201, end: 20101201
  2. CARDIZEM [Concomitant]
     Indication: CARDIAC VALVE DISEASE
     Route: 048
  3. XANAX [Concomitant]
     Indication: NERVOUSNESS
     Dosage: AS NEEDED
     Route: 048
  4. LIPITOR [Concomitant]
     Indication: BLOOD CHOLESTEROL INCREASED
     Dosage: ONCE IN NIGHT
     Route: 048
  5. EVISTA [Concomitant]
     Indication: HORMONE LEVEL ABNORMAL
     Dosage: ONCE IN NIGHT
     Route: 048
  6. REGLAN [Concomitant]
     Indication: GASTRIC DISORDER
     Route: 048
  7. PRILOSEC [Concomitant]
     Indication: GASTRIC DISORDER
     Route: 048
  8. ASPIRIN [Concomitant]
     Indication: CARDIAC DISORDER
     Route: 048
  9. LEVAQUIN [Suspect]
     Indication: PNEUMONIA
     Dosage: FOR 14 DAYS
     Route: 048
     Dates: start: 20101201, end: 20101201

REACTIONS (13)
  - JOINT INJURY [None]
  - INSOMNIA [None]
  - ANXIETY [None]
  - LIMB DISCOMFORT [None]
  - DIZZINESS [None]
  - DYSPHONIA [None]
  - ABNORMAL LOSS OF WEIGHT [None]
  - RASH [None]
  - DRUG INEFFECTIVE [None]
  - NERVOUSNESS [None]
  - FATIGUE [None]
  - ASTHENIA [None]
  - EATING DISORDER [None]
